FAERS Safety Report 13899906 (Version 3)
Quarter: 2024Q4

REPORT INFORMATION
  Report Type: Spontaneous
  Country: US (occurrence: US)
  Receive Date: 20170824
  Receipt Date: 20241029
  Transmission Date: 20250115
  Serious: Yes (Other)
  Sender: PFIZER
  Company Number: US-MLMSERVICE-20170814-0849559-1

PATIENT
  Age: 67 Year
  Sex: Male

DRUGS (2)
  1. OXALIPLATIN [Suspect]
     Active Substance: OXALIPLATIN
     Indication: Urethral cancer
     Dosage: EVERY 3 WEEKS
     Route: 042
  2. CAPECITABINE [Suspect]
     Active Substance: CAPECITABINE
     Indication: Urethral cancer
     Dosage: 1000 MG, 2X/DAY, DOSE-REDUCED CAPECITABINE 1000 MG BY MOUTH TWICE DAILY
     Route: 048

REACTIONS (4)
  - Neuropathy peripheral [Unknown]
  - Neutropenia [Unknown]
  - Performance status decreased [Unknown]
  - Off label use [Unknown]
